FAERS Safety Report 7208996-X (Version None)
Quarter: 2011Q1

REPORT INFORMATION
  Report Type: 
  Country: None (occurrence: None)
  Receive Date: 20110104
  Receipt Date: 20101221
  Transmission Date: 20110831
  Serious: Yes (Hospitalization, Other)
  Sender: FDA-Public Use
  Company Number: PHHY2010US86808

PATIENT
  Age: 32 Year
  Sex: Male

DRUGS (12)
  1. CLONIDINE [Suspect]
     Dosage: UNK
     Route: 062
  2. KETOROLAC TROMETHAMINE [Suspect]
  3. MORPHINE [Suspect]
     Indication: PAIN
     Dosage: 8 MG/8 HOURS
     Route: 042
  4. MORPHINE [Suspect]
     Dosage: 8 MG/3 HOURS
     Route: 042
  5. HYDROMORPHONE HCL [Suspect]
     Dosage: 8 MG/3 HOURS
  6. HYDROCODONE BITARTRATE AND ACETAMINOPHEN [Suspect]
     Dosage: 2 DF, UNK
     Route: 048
  7. MORPHINE [Suspect]
     Dosage: 4 MG/3 HOURS
     Route: 042
  8. HYDROMORPHONE HCL [Suspect]
     Dosage: 6 MG/3 HOURS
  9. IBUPROFEN [Suspect]
     Route: 062
  10. OXYCODONE HYDROCHLORIDE [Suspect]
     Dosage: UNK
  11. METHADONE [Suspect]
  12. MORPHINE [Suspect]
     Dosage: 6 MG/4 HOURS
     Route: 042

REACTIONS (2)
  - HYPERAESTHESIA [None]
  - PAIN [None]
